FAERS Safety Report 8097133-8 (Version None)
Quarter: 2012Q1

REPORT INFORMATION
  Report Type: 
  Country: None (occurrence: None)
  Receive Date: 20120129
  Receipt Date: 20111121
  Transmission Date: 20120608
  Serious: No
  Sender: FDA-Public Use
  Company Number: US-ABBOTT-11P-163-0876426-00

PATIENT
  Age: 49 Year
  Sex: Female

DRUGS (2)
  1. HUMIRA [Suspect]
     Indication: RHEUMATOID ARTHRITIS
     Dates: start: 20100301, end: 20111001
  2. HUMIRA [Suspect]
     Route: 050
     Dates: start: 20111031

REACTIONS (2)
  - RHEUMATOID ARTHRITIS [None]
  - DRUG DOSE OMISSION [None]
